FAERS Safety Report 20934345 (Version 1)
Quarter: 2022Q2

REPORT INFORMATION
  Report Type: Spontaneous
  Country: DE (occurrence: DE)
  Receive Date: 20220608
  Receipt Date: 20220608
  Transmission Date: 20220721
  Serious: Yes (Other)
  Sender: FDA-Public Use
  Company Number: DE-AMGEN-DEUSP2022088336

PATIENT
  Age: 7 Year
  Sex: Male

DRUGS (6)
  1. ADALIMUMAB [Suspect]
     Active Substance: ADALIMUMAB
     Indication: Graft versus host disease
     Dosage: UNK UNK, QWK
     Dates: start: 201811
  2. CYCLOSPORINE [Concomitant]
     Active Substance: CYCLOSPORINE
     Indication: Graft versus host disease
     Dosage: UNK
  3. TACROLIMUS [Concomitant]
     Active Substance: TACROLIMUS
     Indication: Graft versus host disease
     Dosage: UNK
     Dates: end: 201811
  4. BUDESONIDE [Concomitant]
     Active Substance: BUDESONIDE
     Indication: Graft versus host disease
     Dosage: UNK
     Route: 048
     Dates: start: 201811
  5. PREDNISONE [Concomitant]
     Active Substance: PREDNISONE
     Indication: Graft versus host disease
     Dosage: UNK
     Dates: start: 201810, end: 201812
  6. RUXOLITINIB [Concomitant]
     Active Substance: RUXOLITINIB
     Indication: Graft versus host disease
     Dosage: UNK
     Dates: start: 201811

REACTIONS (4)
  - Coagulation factor deficiency [Recovered/Resolved]
  - Adenovirus infection [Unknown]
  - Epstein-Barr virus infection reactivation [Unknown]
  - Off label use [Unknown]

NARRATIVE: CASE EVENT DATE: 20181201
